FAERS Safety Report 10265771 (Version 7)
Quarter: 2015Q3

REPORT INFORMATION
  Report Type: Spontaneous
  Country: US (occurrence: US)
  Receive Date: 20140627
  Receipt Date: 20150930
  Transmission Date: 20151125
  Serious: Yes (Other)
  Sender: FDA-Public Use
  Company Number: US-GLAXOSMITHKLINE-A1074421A

PATIENT
  Sex: Male

DRUGS (2)
  1. PROMACTA [Suspect]
     Active Substance: ELTROMBOPAG OLAMINE
     Indication: THROMBOCYTOPENIA
     Dosage: 200 MG, 1D
     Route: 048
  2. PROMACTA [Suspect]
     Active Substance: ELTROMBOPAG OLAMINE
     Indication: IMMUNE THROMBOCYTOPENIC PURPURA
     Dosage: 50 MG, QD
     Dates: start: 20130602

REACTIONS (13)
  - Memory impairment [Unknown]
  - Decreased appetite [Unknown]
  - Myalgia [Unknown]
  - Papule [Recovered/Resolved]
  - Rash [Unknown]
  - Fatigue [Unknown]
  - Pruritus [Recovering/Resolving]
  - Dementia [Unknown]
  - Pain in extremity [Not Recovered/Not Resolved]
  - Urticaria [Recovering/Resolving]
  - Hypersensitivity [Not Recovered/Not Resolved]
  - Drug dose omission [Recovered/Resolved]
  - Back pain [Unknown]
